FAERS Safety Report 25977108 (Version 1)
Quarter: 2025Q4

REPORT INFORMATION
  Report Type: Spontaneous
  Country: US (occurrence: US)
  Receive Date: 20251030
  Receipt Date: 20251030
  Transmission Date: 20260119
  Serious: No
  Sender: BRISTOL-MYERS SQUIBB COMPANY
  Company Number: US-BRISTOL-MYERS SQUIBB COMPANY-2025-146105

PATIENT
  Age: 73 Year

DRUGS (2)
  1. NULOJIX [Suspect]
     Active Substance: BELATACEPT
     Indication: Product used for unknown indication
     Route: 042
  2. NULOJIX [Suspect]
     Active Substance: BELATACEPT
     Route: 042

REACTIONS (1)
  - Weight fluctuation [Unknown]
